FAERS Safety Report 25359333 (Version 2)
Quarter: 2025Q3

REPORT INFORMATION
  Report Type: Report from Study
  Country: CA (occurrence: CA)
  Receive Date: 20250526
  Receipt Date: 20250808
  Transmission Date: 20251021
  Serious: Yes (Life-Threatening, Hospitalization)
  Sender: TAKEDA
  Company Number: CA-TAKEDA-2017TUS005978

PATIENT
  Age: 72 Year
  Sex: Male

DRUGS (34)
  1. VEDOLIZUMAB [Suspect]
     Active Substance: VEDOLIZUMAB
     Indication: Colitis ulcerative
  2. VEDOLIZUMAB [Suspect]
     Active Substance: VEDOLIZUMAB
     Dosage: 300 MILLIGRAM, Q6WEEKS
     Dates: start: 20171220
  3. VEDOLIZUMAB [Suspect]
     Active Substance: VEDOLIZUMAB
     Dosage: 300 MILLIGRAM, Q4WEEKS
     Dates: start: 20190319
  4. VEDOLIZUMAB [Suspect]
     Active Substance: VEDOLIZUMAB
     Dosage: 300 MILLIGRAM, Q4WEEKS
  5. VEDOLIZUMAB [Suspect]
     Active Substance: VEDOLIZUMAB
     Dosage: 300 MILLIGRAM, Q4WEEKS
  6. VEDOLIZUMAB [Suspect]
     Active Substance: VEDOLIZUMAB
     Dosage: 300 MILLIGRAM, Q4WEEKS
  7. VITAMIN D [Concomitant]
     Active Substance: VITAMIN D NOS
  8. HALIBUT LIVER OIL [Concomitant]
     Active Substance: HALIBUT LIVER OIL
  9. JANUVIA [Concomitant]
     Active Substance: SITAGLIPTIN PHOSPHATE
     Dosage: 100 MILLIGRAM, QD
  10. ASPIRIN [Concomitant]
     Active Substance: ASPIRIN
  11. LIPITOR [Concomitant]
     Active Substance: ATORVASTATIN CALCIUM
  12. OLMESARTAN MEDOXOMIL [Concomitant]
     Active Substance: OLMESARTAN MEDOXOMIL
  13. NOVORAPID [Concomitant]
     Active Substance: INSULIN ASPART
  14. LEVEMIR [Concomitant]
     Active Substance: INSULIN DETEMIR
     Dosage: UNK UNK, BID
  15. Salofalk [Concomitant]
  16. PREDNISONE [Concomitant]
     Active Substance: PREDNISONE
  17. CLOPIDOGREL [Concomitant]
     Active Substance: CLOPIDOGREL BISULFATE
  18. FUROSEMIDE [Concomitant]
     Active Substance: FUROSEMIDE
  19. TRESIBA [Concomitant]
     Active Substance: INSULIN DEGLUDEC
  20. TRESIBA [Concomitant]
     Active Substance: INSULIN DEGLUDEC
  21. OLMESARTAN [Concomitant]
     Active Substance: OLMESARTAN
  22. SILDENAFIL [Concomitant]
     Active Substance: SILDENAFIL
  23. ATORVASTATIN CALCIUM [Concomitant]
     Active Substance: ATORVASTATIN CALCIUM
  24. OZEMPIC [Concomitant]
     Active Substance: SEMAGLUTIDE
  25. NITROGLYCERIN [Concomitant]
     Active Substance: NITROGLYCERIN
     Route: 061
  26. BETAHISTINE [Concomitant]
     Active Substance: BETAHISTINE
  27. JARDIANCE [Concomitant]
     Active Substance: EMPAGLIFLOZIN
  28. DOXYCYCLINE [Concomitant]
     Active Substance: DOXYCYCLINE
  29. TAMSULOSIN [Concomitant]
     Active Substance: TAMSULOSIN
  30. NINTEDANIB [Concomitant]
     Active Substance: NINTEDANIB
  31. PANTOPRAZOLE [Concomitant]
     Active Substance: PANTOPRAZOLE
  32. BREZTRI [Concomitant]
     Active Substance: BUDESONIDE\FORMOTEROL\GLYCOPYRROLATE
  33. VENTOLIN [Concomitant]
     Active Substance: ALBUTEROL SULFATE
  34. SPIRIVA [Concomitant]
     Active Substance: TIOTROPIUM BROMIDE MONOHYDRATE

REACTIONS (9)
  - Hypoglycaemia [Recovered/Resolved]
  - Clumsiness [Unknown]
  - Diabetic neuropathy [Unknown]
  - Gait disturbance [Unknown]
  - Respiratory rate increased [Unknown]
  - Oxygen saturation decreased [Unknown]
  - Heart rate increased [Unknown]
  - Weight decreased [Recovered/Resolved]
  - Stress [Recovered/Resolved]

NARRATIVE: CASE EVENT DATE: 20250507
